FAERS Safety Report 4667276-7 (Version None)
Quarter: 2005Q2

REPORT INFORMATION
  Report Type: 
  Country: None (occurrence: None)
  Receive Date: 20050520
  Receipt Date: 20040831
  Transmission Date: 20051028
  Serious: Yes (Other)
  Sender: FDA-Public Use
  Company Number: PHEH2004US09432

PATIENT
  Age: 57 Year
  Sex: Male

DRUGS (9)
  1. ZOMETA [Suspect]
     Indication: PROSTATE CANCER
     Dosage: UNK, QMO
     Route: 042
     Dates: start: 20020101, end: 20040801
  2. CASODEX [Concomitant]
  3. TAXOTERE [Concomitant]
  4. MITOXANTRONE [Concomitant]
  5. PROSCAR [Concomitant]
  6. AVODART [Concomitant]
  7. LUPRON [Concomitant]
     Dates: end: 20040701
  8. AVODART [Concomitant]
  9. PRILOSEC [Concomitant]

REACTIONS (5)
  - BONE DISORDER [None]
  - OSTEONECROSIS [None]
  - PAIN [None]
  - SWELLING [None]
  - TOOTH ABSCESS [None]
